FAERS Safety Report 11580208 (Version 1)
Quarter: 2015Q3

REPORT INFORMATION
  Report Type: Spontaneous
  Country: US (occurrence: US)
  Receive Date: 20150916
  Receipt Date: 20150916
  Transmission Date: 20151125
  Serious: No
  Sender: FDA-Public Use
  Company Number: US-ELI_LILLY_AND_COMPANY-US200804007093

PATIENT
  Age: 85 Year
  Sex: Female
  Weight: 75.28 kg

DRUGS (10)
  1. ZETIA [Concomitant]
     Active Substance: EZETIMIBE
  2. CALCIUM [Concomitant]
     Active Substance: CALCIUM
  3. LESCOL [Concomitant]
     Active Substance: FLUVASTATIN SODIUM
  4. LASIX [Concomitant]
     Active Substance: FUROSEMIDE
  5. VITAMIN D [Concomitant]
     Active Substance: CHOLECALCIFEROL
  6. FORTEO [Suspect]
     Active Substance: TERIPARATIDE
     Indication: OSTEOPOROSIS
     Dosage: 20 UG, DAILY (1/D)
     Dates: start: 200707
  7. ATENOLOL. [Concomitant]
     Active Substance: ATENOLOL
  8. POTASSIUM [Concomitant]
     Active Substance: POTASSIUM
  9. FAMOTIDINE. [Concomitant]
     Active Substance: FAMOTIDINE
  10. AFEDITAB [Concomitant]

REACTIONS (3)
  - Fall [Recovering/Resolving]
  - Balance disorder [Unknown]
  - Hand fracture [Recovering/Resolving]

NARRATIVE: CASE EVENT DATE: 200804
